FAERS Safety Report 7398919 (Version 3)
Quarter: 2013Q3

REPORT INFORMATION
  Report Type: Report from Study
  Country: AU (occurrence: AU)
  Receive Date: 20100525
  Receipt Date: 20130705
  Transmission Date: 20140515
  Serious: Yes (Hospitalization, Other)
  Sender: FDA-Public Use
  Company Number: PHHO2010AU07609

PATIENT
  Age: 62 Year
  Sex: Male
  Weight: 94.7 kg

DRUGS (6)
  1. AFINITOR [Suspect]
     Indication: COLORECTAL CANCER METASTATIC
     Dosage: 10 MG, QD
     Route: 048
     Dates: start: 20100323, end: 20100517
  2. AFINITOR [Suspect]
     Dosage: 10 MG, QD
     Route: 048
     Dates: start: 20100909, end: 20101004
  3. ZOLEDRONATE [Suspect]
     Indication: METASTASES TO BONE
     Dosage: 4 MG, UNK
     Route: 042
     Dates: start: 20100323
  4. ZOLEDRONATE [Suspect]
     Dosage: 4 MG, Q3W
     Route: 042
     Dates: start: 20100909, end: 20101004
  5. LESCOL [Suspect]
     Indication: COLORECTAL CANCER METASTATIC
     Dosage: 120 MG, QD
     Route: 048
     Dates: start: 20100323, end: 20100517
  6. LESCOL [Suspect]
     Dosage: 120 MG, QD
     Route: 048
     Dates: start: 20100909, end: 20101004

REACTIONS (12)
  - Hypertension [Not Recovered/Not Resolved]
  - Malignant neoplasm progression [Not Recovered/Not Resolved]
  - Small intestinal obstruction [Recovered/Resolved]
  - Abdominal pain [Recovered/Resolved]
  - Nausea [Recovered/Resolved]
  - Vomiting [Recovered/Resolved]
  - Abdominal distension [Recovered/Resolved]
  - Food intolerance [Recovered/Resolved]
  - Alanine aminotransferase increased [Unknown]
  - Blood alkaline phosphatase increased [Unknown]
  - Gamma-glutamyltransferase increased [Unknown]
  - Aspartate aminotransferase increased [Unknown]
